FAERS Safety Report 8849774 (Version 1)
Quarter: 2012Q4

REPORT INFORMATION
  Report Type: 
  Country: GB (occurrence: GB)
  Receive Date: 20121019
  Receipt Date: 20121019
  Transmission Date: 20130627
  Serious: Yes (Death)
  Sender: FDA-Public Use
  Company Number: PHHY2012GB093411

PATIENT

DRUGS (5)
  1. CICLOSPORIN [Suspect]
     Indication: RENAL TRANSPLANT
  2. TACROLIMUS [Concomitant]
     Indication: RENAL TRANSPLANT
  3. AZATHIOPRINE [Concomitant]
     Indication: RENAL TRANSPLANT
  4. MYCOPHENOLATE MOFETIL [Concomitant]
     Indication: RENAL TRANSPLANT
  5. PREDNISOLONE [Concomitant]
     Indication: RENAL TRANSPLANT

REACTIONS (1)
  - Neoplasm skin [Fatal]
